FAERS Safety Report 4808180-0 (Version None)
Quarter: 2005Q4

REPORT INFORMATION
  Report Type: 
  Country: None (occurrence: None)
  Receive Date: 20051020
  Receipt Date: 20051013
  Transmission Date: 20060501
  Serious: Yes (Hospitalization)
  Sender: FDA-Public Use
  Company Number: 6017515

PATIENT
  Age: 70 Year
  Sex: Female

DRUGS (7)
  1. LODOZ (HYDROCHLOROTHIAZIDE, BISOPROLOL FUMARATE) [Suspect]
     Dates: end: 20050727
  2. EURELIX (PIRETANIDE) [Suspect]
     Dates: end: 20050727
  3. XELODA [Suspect]
     Dosage: ORAL
     Route: 048
     Dates: start: 20050519, end: 20050623
  4. TENSTATEN (50 MG, CAPSULE) (CICLETANINE) [Suspect]
     Dates: end: 20050727
  5. IMODIUM [Suspect]
     Dates: end: 20050727
  6. ELOXATINE (100 MG) (OXALIPLATIN) [Suspect]
     Route: 042
     Dates: start: 20050519, end: 20050623
  7. INNOHEP [Concomitant]

REACTIONS (2)
  - DRUG INEFFECTIVE [None]
  - PANCYTOPENIA [None]
